FAERS Safety Report 6611258-2 (Version None)
Quarter: 2010Q1

REPORT INFORMATION
  Report Type: 
  Country: None (occurrence: None)
  Receive Date: 20100301
  Receipt Date: 20100301
  Transmission Date: 20100710
  Serious: Yes (Hospitalization)
  Sender: FDA-Public Use
  Company Number: None

PATIENT
  Sex: Female
  Weight: 77.27 kg

DRUGS (3)
  1. CARBOPLATIN [Suspect]
     Dosage: 1070 MG
     Dates: end: 20100222
  2. TAXOL [Suspect]
     Dosage: 390 MG
     Dates: end: 20100222
  3. MIRTAZAPINE [Concomitant]

REACTIONS (2)
  - DEEP VEIN THROMBOSIS [None]
  - SUBCLAVIAN VEIN THROMBOSIS [None]
